FAERS Safety Report 12787753 (Version 1)
Quarter: 2016Q3

REPORT INFORMATION
  Report Type: Report from Study
  Country: ES (occurrence: ES)
  Receive Date: 20160928
  Receipt Date: 20160928
  Transmission Date: 20161109
  Serious: Yes (Other)
  Sender: FDA-Public Use
  Company Number: ES-ROCHE-652744

PATIENT

DRUGS (7)
  1. CYCLOPHOSPHAMIDE. [Suspect]
     Active Substance: CYCLOPHOSPHAMIDE
     Indication: DIFFUSE LARGE B-CELL LYMPHOMA
     Route: 065
  2. PEGFILGRASTIM [Suspect]
     Active Substance: PEGFILGRASTIM
     Indication: PRODUCT USED FOR UNKNOWN INDICATION
     Dosage: ADMINISTERED IN A SINGLE (PER CYCLE) SUBCUTANEOUS DOSE OF 6 MG ON DAY 2.
     Route: 058
  3. VINCRISTINE [Suspect]
     Active Substance: VINCRISTINE
     Indication: DIFFUSE LARGE B-CELL LYMPHOMA
     Dosage: MAXIMAL DOSE 2 MG.
     Route: 065
  4. DOXORUBICIN [Suspect]
     Active Substance: DOXORUBICIN
     Indication: DIFFUSE LARGE B-CELL LYMPHOMA
     Route: 065
  5. PREDNISONE. [Suspect]
     Active Substance: PREDNISONE
     Indication: DIFFUSE LARGE B-CELL LYMPHOMA
     Dosage: 100 MG/DAY FOR 5 DAYS.
     Route: 065
  6. LIPOSOMAL CYTARABINE [Suspect]
     Active Substance: CYTARABINE
     Indication: PROPHYLAXIS
     Dosage: CYCLES 1, 2, AND 6.
     Route: 065
  7. RITUXIMAB [Suspect]
     Active Substance: RITUXIMAB
     Indication: DIFFUSE LARGE B-CELL LYMPHOMA
     Dosage: 6 CYCLES EVERY 14 DAYS.
     Route: 042

REACTIONS (21)
  - Septic shock [Unknown]
  - Retching [Unknown]
  - Vomiting [Unknown]
  - Throat irritation [Unknown]
  - Mucosal inflammation [Unknown]
  - Pyrexia [Unknown]
  - Febrile neutropenia [Unknown]
  - Hepatotoxicity [Unknown]
  - Neutropenia [Unknown]
  - Dyspnoea [Unknown]
  - Asthenia [Unknown]
  - Paraesthesia [Unknown]
  - Neuropathy peripheral [Unknown]
  - Oral candidiasis [Unknown]
  - Diarrhoea [Unknown]
  - Decreased appetite [Unknown]
  - Bone pain [Unknown]
  - Alopecia [Unknown]
  - Pneumonia [Unknown]
  - Anaemia [Unknown]
  - Constipation [Unknown]
